FAERS Safety Report 26103289 (Version 1)
Quarter: 2025Q4

REPORT INFORMATION
  Report Type: Spontaneous
  Country: US (occurrence: US)
  Receive Date: 20251129
  Receipt Date: 20251129
  Transmission Date: 20260117
  Serious: No
  Sender: IBSA INSTITUT BIOCHIMIQUE
  Company Number: US-IBSA PHARMA INC.-2024IBS000530

PATIENT

DRUGS (4)
  1. TIROSINT [Suspect]
     Active Substance: LEVOTHYROXINE SODIUM
     Indication: Hypothyroidism
     Dosage: 100 MICROGRAM, QD
     Dates: start: 2022
  2. FENNEL [FOENICULUM VULGARE] [Concomitant]
     Indication: Irritable bowel syndrome
  3. ZINGIBER OFFICINALE (GINGER) ROOT [Concomitant]
     Active Substance: GINGER
     Indication: Irritable bowel syndrome
  4. PEPPERMINT OIL [Concomitant]
     Active Substance: PEPPERMINT OIL
     Indication: Irritable bowel syndrome

REACTIONS (2)
  - Thyroxine increased [Unknown]
  - Blood thyroid stimulating hormone increased [Unknown]
